FAERS Safety Report 9594171 (Version 1)
Quarter: 2013Q4

REPORT INFORMATION
  Report Type: Spontaneous
  Country: US (occurrence: None)
  Receive Date: 20131002
  Receipt Date: 20131002
  Transmission Date: 20140711
  Serious: Yes (Other)
  Sender: FDA-Public Use
  Company Number: SYM-2013-11121

PATIENT
  Age: 56 Year
  Sex: Female
  Weight: 63.5 kg

DRUGS (10)
  1. (TETRABENAZINE) (12.5 MILLIGRAM, TABLET)(TETRABENAZINE) [Suspect]
     Indication: HUNTINGTON^S DISEASE
     Dosage: 12.5 MG, 2 IN 1 D, ORAL
     Route: 048
     Dates: start: 20130810, end: 20130815
  2. ADDERALL (OBETROL /01345401/) (DEXAMEFETAMINE SULFATE, AMFETAMINE SULFATE , AMFETAMINE ASPAR [Concomitant]
  3. DIAZEPAM (DIAZEPAM) (DIAZEPAM) [Concomitant]
  4. LITHIUM [Concomitant]
  5. PREVACID (LANSOPRAZOLE) (LANSOPRAZOLE) [Concomitant]
  6. PROGESTERONE (PROGESTERONE) (PROGESTERONE) [Concomitant]
  7. SEROQUEL (QUETIAPINE FUMARATE) (QUETIAPINE FUMARATE0 [Concomitant]
  8. ESTROGRNS CONJUGATED) (ESTROGENS CONJUGATED) [Concomitant]
  9. PRISTIQ (DESVENLAFAXINE SUCCINATE) (DESVENLAFAXINR SUCCINATE) [Concomitant]
  10. SINGULAIR (MONTELUKAST SODIUM) (MONTELUKAST) [Concomitant]

REACTIONS (2)
  - Depression [None]
  - Hyperventilation [None]
